FAERS Safety Report 6055748-2 (Version None)
Quarter: 2009Q1

REPORT INFORMATION
  Report Type: 
  Country: None (occurrence: None)
  Receive Date: 20090128
  Receipt Date: 20090121
  Transmission Date: 20090719
  Serious: Yes (Death)
  Sender: FDA-Public Use
  Company Number: FR-SANOFI-SYNTHELABO-A02200900070

PATIENT
  Sex: Female
  Weight: 74 kg

DRUGS (47)
  1. FASTURTEC [Suspect]
     Indication: HYPERURICAEMIA
     Route: 042
     Dates: start: 20081114, end: 20081114
  2. ANAFRANIL [Concomitant]
     Dosage: UNK
     Route: 065
     Dates: start: 20081101
  3. TERCIAN [Concomitant]
     Dosage: UNK
     Route: 048
     Dates: start: 20081101
  4. THYMOGLOBULIN [Suspect]
     Indication: STEM CELL TRANSPLANT
     Route: 042
     Dates: start: 20081119, end: 20081120
  5. CIFLOX [Suspect]
     Indication: KLEBSIELLA INFECTION
     Dosage: UNK
     Route: 065
     Dates: end: 20081128
  6. TAZOCILLINE [Suspect]
     Indication: KLEBSIELLA INFECTION
     Dosage: UNK
     Route: 042
     Dates: start: 20081120, end: 20081128
  7. METHOTREXATE [Suspect]
     Indication: PROPHYLAXIS AGAINST TRANSPLANT REJECTION
     Dosage: UNK
     Route: 065
     Dates: start: 20081122, end: 20081122
  8. METHOTREXATE [Suspect]
     Dosage: UNK
     Route: 065
     Dates: start: 20081124, end: 20081124
  9. METHOTREXATE [Suspect]
     Dosage: UNK
     Route: 065
     Dates: start: 20081127, end: 20081127
  10. CYCLOSPORINE [Suspect]
     Indication: PROPHYLAXIS AGAINST TRANSPLANT REJECTION
     Dosage: UNK
     Route: 065
     Dates: start: 20081122, end: 20081122
  11. CYCLOSPORINE [Suspect]
     Dosage: UNK
     Route: 065
     Dates: start: 20081124, end: 20081124
  12. CYCLOSPORINE [Suspect]
     Dosage: UNK
     Route: 065
     Dates: start: 20081127, end: 20081127
  13. FLUDARA [Suspect]
     Indication: STEM CELL TRANSPLANT
     Route: 042
     Dates: start: 20081115, end: 20081119
  14. VFEND [Concomitant]
     Dosage: UNK
     Route: 065
     Dates: start: 20080701
  15. FORLAX [Concomitant]
     Dosage: UNK
     Route: 048
  16. ZOPHREN [Concomitant]
     Dosage: UNK
     Route: 065
  17. CORDARONE [Concomitant]
     Dosage: UNK
     Route: 048
  18. FLAGYL [Concomitant]
     Dosage: UNK
     Route: 065
  19. IMODIUM [Concomitant]
     Dosage: UNK
     Route: 048
  20. LASILIX [Concomitant]
     Dosage: UNK
     Route: 065
  21. TAREG [Concomitant]
     Dosage: UNK
     Route: 048
  22. NOCTRAN [Concomitant]
     Dosage: UNK
     Route: 048
     Dates: start: 20081101
  23. TEMESTA [Concomitant]
     Dosage: UNK
     Route: 048
     Dates: start: 20081101
  24. MORPHINE [Concomitant]
     Dosage: UNK
     Route: 065
  25. KALINOX [Concomitant]
     Dosage: UNK
     Route: 065
  26. ZYVOXID [Concomitant]
     Dosage: UNK
     Route: 065
  27. TIENAM [Concomitant]
     Dosage: UNK
     Route: 065
  28. LOXEN [Concomitant]
     Dosage: 50 MG
     Route: 065
     Dates: start: 20081125
  29. DOBUTREX [Concomitant]
     Dosage: 250 MG
     Route: 065
     Dates: start: 20081124, end: 20081128
  30. ALUMINUM HYDROXIDE AND MAGNESIUM TRISILICATE [Concomitant]
     Dosage: 2 UNK
     Route: 048
     Dates: start: 20081123
  31. ZOVIRAX [Concomitant]
     Dosage: 500 MG
     Route: 042
     Dates: start: 20081122
  32. OMEPRAZOLE [Concomitant]
     Dosage: 40 MG
     Route: 042
     Dates: start: 20081120
  33. SOLU-MEDROL [Concomitant]
     Route: 042
     Dates: start: 20081119, end: 20081120
  34. POLARAMINE [Concomitant]
     Dosage: 10 MG
     Route: 065
     Dates: start: 20081119, end: 20081120
  35. VANCOMYCIN HCL [Concomitant]
     Dosage: UNK
     Route: 002
     Dates: start: 20081115
  36. FUNGIZONE [Concomitant]
     Dosage: 2000 MG
     Route: 065
     Dates: start: 20081115
  37. PRIMPERAN TAB [Concomitant]
     Dosage: 2 UNIT
     Route: 065
     Dates: start: 20081115, end: 20081119
  38. VITAMIN A DULCIS [Concomitant]
     Dosage: UNK
     Route: 047
     Dates: start: 20081113
  39. BETAGAN [Concomitant]
     Dosage: UNK
     Route: 047
  40. THYMOGLOBULIN [Concomitant]
     Route: 042
     Dates: start: 20081119, end: 20081120
  41. DAFALGAN [Concomitant]
     Dosage: 1500 MG
     Route: 048
  42. OMEPRAZOLE [Concomitant]
     Route: 048
  43. BISOPROLOL [Concomitant]
     Dosage: UNK
     Route: 065
  44. INIPOMP [Suspect]
     Indication: DRUG USE FOR UNKNOWN INDICATION
     Route: 048
     Dates: start: 20081113
  45. TREOSULFAN [Suspect]
     Indication: STEM CELL TRANSPLANT
     Dosage: 21 G
     Route: 042
     Dates: start: 20081115, end: 20081117
  46. ZYLORIC [Suspect]
     Indication: DRUG USE FOR UNKNOWN INDICATION
     Dosage: 2 UNIT
     Route: 048
     Dates: start: 20081120
  47. TOPALGIC [Suspect]
     Indication: DRUG USE FOR UNKNOWN INDICATION
     Dosage: UNK
     Route: 042
     Dates: start: 20081119

REACTIONS (1)
  - TOXIC EPIDERMAL NECROLYSIS [None]
